FAERS Safety Report 22612380 (Version 2)
Quarter: 2023Q2

REPORT INFORMATION
  Report Type: Spontaneous
  Country: JP (occurrence: JP)
  Receive Date: 20230617
  Receipt Date: 20230628
  Transmission Date: 20230722
  Serious: Yes (Other)
  Sender: FDA-Public Use
  Company Number: JP-ONO-2023JP015175

PATIENT
  Age: 10 Decade
  Sex: Female

DRUGS (1)
  1. RIVASTIGMINE [Suspect]
     Active Substance: RIVASTIGMINE
     Indication: Dementia with Lewy bodies
     Dosage: 4.5 MG (FORMULATION: TAPE (INCLUDING POULTICE))
     Route: 062

REACTIONS (5)
  - Hallucination, visual [Recovered/Resolved]
  - Restlessness [Recovering/Resolving]
  - Insomnia [Unknown]
  - Agitation [Unknown]
  - Off label use [Unknown]
